FAERS Safety Report 15220018 (Version 1)
Quarter: 2018Q3

REPORT INFORMATION
  Report Type: Spontaneous
  Country: US (occurrence: US)
  Receive Date: 20180731
  Receipt Date: 20180731
  Transmission Date: 20181010
  Serious: No
  Sender: FDA-Public Use
  Company Number: US-PFIZER INC-2018305056

PATIENT
  Age: 67 Year
  Sex: Female
  Weight: 58 kg

DRUGS (5)
  1. HYDROCODONE [Concomitant]
     Active Substance: HYDROCODONE
     Indication: PAIN
     Dosage: 7.5 MG, 3X/DAY
     Route: 048
     Dates: start: 2013
  2. CHANTIX [Suspect]
     Active Substance: VARENICLINE TARTRATE
     Indication: SMOKING CESSATION THERAPY
     Dosage: 0.5 MG, ONCE A DAY
     Route: 048
     Dates: start: 20180707
  3. CHANTIX [Suspect]
     Active Substance: VARENICLINE TARTRATE
     Dosage: 1 MG, TWICE A DAY (ONE IN THE MORNING AND ONCE IN THE EVENING)
     Route: 048
  4. LISINOPRIL. [Concomitant]
     Active Substance: LISINOPRIL
     Indication: HYPERTENSION
     Dosage: 10 MG, 1X/DAY
     Route: 048
     Dates: start: 2014
  5. CHANTIX [Suspect]
     Active Substance: VARENICLINE TARTRATE
     Dosage: 0.5 MG, TWICE A DAY (ONCE IN THE MORNING AND ONCE IN THE EVENING)
     Route: 048

REACTIONS (1)
  - Nausea [Recovered/Resolved]
